FAERS Safety Report 16326471 (Version 1)
Quarter: 2019Q2

REPORT INFORMATION
  Report Type: Spontaneous
  Country: SE (occurrence: SE)
  Receive Date: 20190517
  Receipt Date: 20190517
  Transmission Date: 20190711
  Serious: Yes (Other)
  Sender: FDA-Public Use
  Company Number: SE-PFIZER INC-2019203989

PATIENT
  Age: 57 Year
  Sex: Male

DRUGS (6)
  1. CANDESARTAN/HYDROCHLOROTHIAZIDE [Concomitant]
     Dosage: UNK, 1X/DAY (32MG/12.5 MG; 05-1 TABLET 1/DAY)
     Route: 048
     Dates: start: 20181218
  2. PREGABALIN. [Suspect]
     Active Substance: PREGABALIN
     Indication: NEURALGIA
     Dosage: UNK, 1X/DAY
  3. PRAMIPEXOLE. [Concomitant]
     Active Substance: PRAMIPEXOLE
     Dosage: 0.18 MG, AS NEEDED (0.18 MG 0.5 TABLET AS NEEDED)
     Route: 048
     Dates: start: 20160920
  4. ORUDIS [Concomitant]
     Active Substance: KETOPROFEN
     Dosage: UNK, AS NEEDED (APPLICATION AS NEEDED 1 TIMES DAILY, TOPICAL)
     Route: 061
     Dates: start: 20161206
  5. GEMADOL [TRAMADOL HYDROCHLORIDE] [Concomitant]
     Dosage: UNK (ACCORDING TO SPECIAL PRESCRIPTION)
     Route: 048
     Dates: start: 20181123
  6. PREGABALIN. [Suspect]
     Active Substance: PREGABALIN
     Indication: FIBROMYALGIA
     Dosage: 50 MG, 1X/DAY
     Route: 048
     Dates: start: 20190309, end: 20190312

REACTIONS (2)
  - Palpitations [Recovered/Resolved]
  - Tachycardia [Recovered/Resolved]

NARRATIVE: CASE EVENT DATE: 201903
